FAERS Safety Report 4969244-4 (Version None)
Quarter: 2006Q2

REPORT INFORMATION
  Report Type: 
  Country: None (occurrence: None)
  Receive Date: 20060405
  Receipt Date: 20060323
  Transmission Date: 20061013
  Serious: Yes (Hospitalization, Congenital Anomaly, Other)
  Sender: FDA-Public Use
  Company Number: 2005097026

PATIENT
  Age: 66 Year
  Sex: Female
  Weight: 78.9259 kg

DRUGS (1)
  1. SUTENT [Suspect]
     Indication: GASTROINTESTINAL STROMAL TUMOUR
     Dosage: 50 MG (50 MG, 1 IN 1 D), ORAL
     Route: 048
     Dates: start: 20040826

REACTIONS (5)
  - DUODENAL ULCER [None]
  - FATIGUE [None]
  - HAEMOGLOBIN DECREASED [None]
  - HYPOTHYROIDISM [None]
  - THROMBOSIS [None]
